FAERS Safety Report 4543061-1 (Version None)
Quarter: 2004Q4

REPORT INFORMATION
  Report Type: 
  Country: None (occurrence: None)
  Receive Date: 20041229
  Receipt Date: 20041220
  Transmission Date: 20050328
  Serious: Yes (Other)
  Sender: FDA-Public Use
  Company Number: 2004117226

PATIENT
  Age: 44 Year
  Sex: Male

DRUGS (8)
  1. DIFLUCAN [Suspect]
     Indication: ANTIFUNGAL PROPHYLAXIS
     Dosage: 200 MG (1D), ORAL
     Route: 048
     Dates: start: 20041201, end: 20041215
  2. PRODIF (FOSFLUCONAZOLE) [Suspect]
     Indication: ANTIFUNGAL PROPHYLAXIS
     Dosage: 252.3 MG(1D), INTRAVENOUS
     Route: 042
     Dates: start: 20041216, end: 20041219
  3. CARBOPLATIN [Suspect]
     Indication: BONE MARROW CONDITIONING REGIMEN
     Dosage: 1 D, INTRAVENOUS
     Route: 042
     Dates: start: 20040101
  4. CEFEPIME HYDROCHLORIDE (CEFIPIME HYDROCHLORIDE) [Concomitant]
  5. FILGRASTIM (FILGRASTIM) [Concomitant]
  6. ETIZOLAM (ETIZOLAM) [Concomitant]
  7. HICALIQ (CALCIUM GLUCONATE, GLUCOSE, MAGNESIUM SULFATE, POTASSIUM ACET [Concomitant]
  8. MUTLIPLE VITAMINS (ASCORBIC ACID, ERGOCALCIFEROL, FOLIC ACID, RETINOL, [Concomitant]

REACTIONS (5)
  - BLOOD CREATININE INCREASED [None]
  - BONE MARROW TRANSPLANT [None]
  - DIALYSIS [None]
  - RENAL IMPAIRMENT [None]
  - TREMOR [None]
